FAERS Safety Report 12419722 (Version 1)
Quarter: 2016Q2

REPORT INFORMATION
  Report Type: Spontaneous
  Country: RU (occurrence: RU)
  Receive Date: 20160531
  Receipt Date: 20160531
  Transmission Date: 20160815
  Serious: Yes (Other)
  Sender: FDA-Public Use
  Company Number: RU-GLAXOSMITHKLINE-RU2016GSK074538

PATIENT
  Age: 6 Year
  Sex: Female

DRUGS (4)
  1. PIRACETAM [Concomitant]
     Active Substance: PIRACETAM
     Indication: PRODUCT USED FOR UNKNOWN INDICATION
     Dosage: UNK
     Dates: start: 2010
  2. VITAMINS B1 AND B6 [Concomitant]
     Indication: PRODUCT USED FOR UNKNOWN INDICATION
     Dosage: UNK
     Route: 051
     Dates: start: 2010
  3. ACICLOVIR [Suspect]
     Active Substance: ACYCLOVIR
     Indication: PRODUCT USED FOR UNKNOWN INDICATION
     Dosage: UNK
     Dates: start: 20100331
  4. DEXAMETHASONE. [Concomitant]
     Active Substance: DEXAMETHASONE
     Indication: PRODUCT USED FOR UNKNOWN INDICATION
     Dosage: UNK
     Dates: start: 2010

REACTIONS (14)
  - Tongue paralysis [Unknown]
  - Sleep disorder [Unknown]
  - Cerebellar ataxia [Unknown]
  - Lagophthalmos [Unknown]
  - Decreased nasolabial fold [Unknown]
  - Neurological symptom [Unknown]
  - Fatigue [Unknown]
  - Dysmetria [Unknown]
  - Sleep terror [Unknown]
  - Emotional disorder [Unknown]
  - Asthenia [Unknown]
  - Gait disturbance [Unknown]
  - Hyporeflexia [Unknown]
  - Romberg test positive [Unknown]

NARRATIVE: CASE EVENT DATE: 20100331
